FAERS Safety Report 10078692 (Version 1)
Quarter: 2014Q2

REPORT INFORMATION
  Report Type: Report from Study
  Country: US (occurrence: US)
  Receive Date: 20140415
  Receipt Date: 20140415
  Transmission Date: 20141212
  Serious: Yes (Hospitalization)
  Sender: FDA-Public Use
  Company Number: US-SA-2014SA043001

PATIENT
  Age: 71 Year
  Sex: Male

DRUGS (6)
  1. JEVTANA [Suspect]
     Indication: PROSTATE CANCER
     Dosage: FREQUENCY- 1 IN 3 WEEKS
     Route: 042
     Dates: start: 20130807
  2. ANTINEOPLASTIC AGENTS [Suspect]
     Indication: PROSTATE CANCER
     Route: 065
  3. ZOCOR [Concomitant]
     Indication: BLOOD CHOLESTEROL INCREASED
     Route: 048
     Dates: start: 2010
  4. CYMBALTA [Concomitant]
     Indication: DEPRESSION
     Route: 048
     Dates: start: 2008
  5. IMODIUM [Concomitant]
     Indication: DIARRHOEA
     Dosage: AS REQUIRED
     Route: 048
     Dates: start: 20130815
  6. POTASSIUM W/SODIUM CHLORIDE [Concomitant]
     Indication: HYPOPHOSPHATAEMIA
     Dates: start: 20130925

REACTIONS (1)
  - Syncope [Recovered/Resolved]
